FAERS Safety Report 10164888 (Version 1)
Quarter: 2014Q2

REPORT INFORMATION
  Report Type: Spontaneous
  Country: US (occurrence: US)
  Receive Date: 20140510
  Receipt Date: 20140510
  Transmission Date: 20141212
  Serious: No
  Sender: FDA-Public Use
  Company Number: US-BRISTOL-MYERS SQUIBB COMPANY-19525351

PATIENT
  Age: 50 Year
  Sex: Male
  Weight: 68.03 kg

DRUGS (2)
  1. BYETTA [Suspect]
     Indication: TYPE 2 DIABETES MELLITUS
     Dosage: DOSE INCREASED TO 10MCG
     Route: 058
     Dates: start: 2002
  2. RAPAFLO [Suspect]
     Indication: URINARY TRACT DISORDER

REACTIONS (2)
  - Blood glucose increased [Unknown]
  - Influenza like illness [Recovered/Resolved]
